FAERS Safety Report 4974613-2 (Version None)
Quarter: 2006Q2

REPORT INFORMATION
  Report Type: 
  Country: None (occurrence: None)
  Receive Date: 20060410
  Receipt Date: 20060322
  Transmission Date: 20061013
  Serious: Yes (Death)
  Sender: FDA-Public Use
  Company Number: SE200603005901

PATIENT
  Age: 60 Year
  Sex: Female

DRUGS (5)
  1. FORTEO [Suspect]
     Indication: OSTEOPOROSIS
     Dosage: 20 UG, DAILY (1/D), SUBCUTANEOUS
     Route: 058
     Dates: start: 20050512
  2. FORTEO [Concomitant]
  3. METOPROLOL TARTRATE [Concomitant]
  4. COZAAR [Concomitant]
  5. ZOCORD (SIMVASTATIN) [Concomitant]

REACTIONS (1)
  - DEATH [None]
